FAERS Safety Report 16004887 (Version 1)
Quarter: 2019Q1

REPORT INFORMATION
  Report Type: Spontaneous
  Country: SE (occurrence: SE)
  Receive Date: 20190226
  Receipt Date: 20190226
  Transmission Date: 20190418
  Serious: Yes (Hospitalization)
  Sender: FDA-Public Use
  Company Number: SE-ACCORD-109442

PATIENT
  Age: 77 Year
  Sex: Female

DRUGS (12)
  1. LOSARTAN. [Concomitant]
     Active Substance: LOSARTAN
  2. FURIX [Concomitant]
     Active Substance: FUROSEMIDE
  3. IMOVANE [Concomitant]
     Active Substance: ZOPICLONE
  4. REPAGLINIDE. [Concomitant]
     Active Substance: REPAGLINIDE
  5. OXYCONTIN [Concomitant]
     Active Substance: OXYCODONE HYDROCHLORIDE
  6. ALVEDON [Concomitant]
     Active Substance: ACETAMINOPHEN
  7. SIMVASTATIN. [Concomitant]
     Active Substance: SIMVASTATIN
  8. WARAN [Concomitant]
     Active Substance: WARFARIN SODIUM
  9. SPIRONOLACTONE. [Suspect]
     Active Substance: SPIRONOLACTONE
     Indication: PRODUCT USED FOR UNKNOWN INDICATION
     Dosage: 50 MG 1X1
     Route: 048
     Dates: start: 201807, end: 20180720
  10. BEHEPAN [Concomitant]
     Active Substance: HYDROXOCOBALAMIN
  11. LEVAXIN [Concomitant]
     Active Substance: LEVOTHYROXINE SODIUM
  12. CARVEDILOL/CARVEDILOL HYDROCHLODRIDE [Concomitant]

REACTIONS (2)
  - Acute kidney injury [Recovered/Resolved]
  - Dehydration [Recovered/Resolved]

NARRATIVE: CASE EVENT DATE: 20180720
